FAERS Safety Report 10267075 (Version 1)
Quarter: 2014Q2

REPORT INFORMATION
  Report Type: Spontaneous
  Country: US (occurrence: US)
  Receive Date: 20140630
  Receipt Date: 20140630
  Transmission Date: 20141212
  Serious: No
  Sender: FDA-Public Use
  Company Number: US-SHIRE-US201403363

PATIENT
  Age: 34 Year
  Sex: Female
  Weight: 68.27 kg

DRUGS (9)
  1. VYVANSE [Suspect]
     Indication: HYPERSOMNIA
     Dosage: 30 MG, 1X/DAY:QD
     Route: 048
     Dates: start: 201403, end: 201403
  2. VYVANSE [Suspect]
     Dosage: 40 MG, 1X/DAY:QD
     Route: 048
     Dates: start: 201403, end: 201403
  3. VYVANSE [Suspect]
     Dosage: 50 MG, 1X/DAY:QD
     Route: 048
     Dates: start: 201403, end: 201403
  4. VYVANSE [Suspect]
     Dosage: 70 MG, 1X/DAY:QD
     Route: 048
     Dates: start: 201404
  5. CYMBALTA [Concomitant]
     Indication: DEPRESSION
     Dosage: 60 MG, 1X/DAY:QD
     Route: 048
     Dates: start: 2009
  6. NORCO [Concomitant]
     Indication: PAIN
     Dosage: 7.5 MG, EVERY 6 HRS, AS REQ^D
     Route: 048
     Dates: start: 2011
  7. SYNTHROID [Concomitant]
     Indication: THYROIDECTOMY
     Dosage: 125 ?G, 1X/DAY:QD
     Route: 048
     Dates: start: 201202
  8. NORETHISTERONE [Concomitant]
     Indication: CONTRACEPTION
     Dosage: UNK, 1X/DAY:QD, 0.35 MG OR 35 MG
     Route: 048
     Dates: start: 2013
  9. HALCION [Concomitant]
     Indication: PRODUCT USED FOR UNKNOWN INDICATION
     Dosage: 0.25 MG, AS REQ^D
     Route: 048
     Dates: start: 2013, end: 2014

REACTIONS (3)
  - Blood thyroid stimulating hormone increased [Not Recovered/Not Resolved]
  - Amphetamines negative [Not Recovered/Not Resolved]
  - Off label use [Not Recovered/Not Resolved]
